FAERS Safety Report 7699034-3 (Version None)
Quarter: 2011Q3

REPORT INFORMATION
  Report Type: 
  Country: None (occurrence: None)
  Receive Date: 20110819
  Receipt Date: 20110808
  Transmission Date: 20111222
  Serious: Yes (Disabling, Other)
  Sender: FDA-Public Use
  Company Number: PHHY2011US54240

PATIENT
  Sex: Female

DRUGS (8)
  1. LYRICA [Concomitant]
     Indication: NEURALGIA
     Dosage: 150 MG, QHS
     Route: 048
  2. GILENYA [Suspect]
     Indication: MULTIPLE SCLEROSIS
     Dosage: 0.5 MG, DAILY
     Route: 048
     Dates: start: 20110621
  3. ZANAFLEX [Concomitant]
     Indication: MUSCLE SPASTICITY
     Dosage: 2 MG, UNK
     Route: 048
  4. FLOMAX [Concomitant]
     Indication: BLADDER DYSFUNCTION
     Dosage: UNK OT, UNK
  5. GILENYA [Suspect]
     Dosage: 0.5 MG, DAILY
     Route: 048
     Dates: end: 20110717
  6. VESICARE [Concomitant]
     Indication: BLADDER DYSFUNCTION
     Dosage: UNK OT, UNK
  7. BACLOFEN [Concomitant]
     Indication: MUSCLE SPASTICITY
     Dosage: 10 UG, 3-6/DAY
     Route: 048
  8. ZANAFLEX [Concomitant]
     Dosage: 4 MG, UNK

REACTIONS (7)
  - OEDEMA PERIPHERAL [None]
  - COUGH [None]
  - BLADDER DISORDER [None]
  - FLUID RETENTION [None]
  - FLATULENCE [None]
  - ASTHENIA [None]
  - DYSPNOEA [None]
